FAERS Safety Report 5990709-0 (Version None)
Quarter: 2008Q4

REPORT INFORMATION
  Report Type: 
  Country: None (occurrence: None)
  Receive Date: 20081211
  Receipt Date: 20081204
  Transmission Date: 20090506
  Serious: Yes (Other)
  Sender: FDA-Public Use
  Company Number: PHHY2008DE26156

PATIENT
  Sex: Male

DRUGS (6)
  1. RASILEZ [Suspect]
     Indication: HYPERTENSION
     Dosage: 150 MG/DAY
  2. SODIUM [Concomitant]
  3. POTASSIUM CHLORIDE [Concomitant]
  4. IODINE [Concomitant]
  5. CAFFEINE [Concomitant]
  6. CALCIUM [Concomitant]

REACTIONS (14)
  - BLOOD PRESSURE INCREASED [None]
  - BRONCHITIS [None]
  - CONDITION AGGRAVATED [None]
  - DEPRESSED MOOD [None]
  - DRY MOUTH [None]
  - FEELING HOT [None]
  - FOOD INTOLERANCE [None]
  - HEADACHE [None]
  - INSOMNIA [None]
  - NASAL CONGESTION [None]
  - OEDEMA MUCOSAL [None]
  - PALPITATIONS [None]
  - PERIPHERAL COLDNESS [None]
  - PERSONALITY DISORDER [None]
